FAERS Safety Report 5135641-X (Version None)
Quarter: 2006Q4

REPORT INFORMATION
  Report Type: 
  Country: None (occurrence: None)
  Receive Date: 20061020
  Receipt Date: 20061010
  Transmission Date: 20070319
  Serious: Yes (Hospitalization)
  Sender: FDA-Public Use
  Company Number: ABILS-06-0281

PATIENT
  Age: 66 Year
  Sex: Male
  Weight: 101.515 kg

DRUGS (23)
  1. ABRAXANE [Suspect]
     Indication: BREAST CANCER METASTATIC
     Dosage: LAST DOSE PRIOT TO FIRST EVENT 28-APR 2006 (175 MG/M2, EVERY 3 WEEKS), INTRAVENOUS DRIP
     Route: 041
     Dates: start: 20060407, end: 20060815
  2. PROCRIT [Suspect]
     Indication: ANAEMIA OF MALIGNANT DISEASE
     Dosage: SEE IMAGE
     Route: 058
     Dates: start: 20060417, end: 20060619
  3. PROCRIT [Suspect]
     Indication: ANAEMIA OF MALIGNANT DISEASE
     Dosage: SEE IMAGE
     Route: 058
     Dates: start: 20060707, end: 20060816
  4. CYTOXAN [Suspect]
     Indication: BREAST CANCER METASTATIC
     Dosage: LAST DOSE PRIOR TO FIRST EVENT 25-APR-2006 (500 MG/ME, EVERY 3 WEEKS), INTRAVENOUS DRIP
     Route: 041
     Dates: start: 20060405, end: 20060612
  5. DOXORUBICIN HCL [Suspect]
     Indication: BREAST CANCER METASTATIC
     Dosage: LAST DOSE PRIOR TO FIRST EVENT 25-APR-2006 (50 MG/M2, EVERY 3 WEEKS, INTRAVENOUS DRIP
     Route: 041
     Dates: start: 20060405, end: 20060612
  6. ASPIRIN [Suspect]
     Indication: HYPERCHOLESTEROLAEMIA
     Dosage: 325 MG (325 MG, OD), ORAL
     Route: 048
     Dates: start: 20060101
  7. NEUPOGEN [Suspect]
     Indication: NEUTROPENIA
     Dosage: 325 MG (325 MG, OD), ORAL
     Route: 048
     Dates: start: 20060408, end: 20060817
  8. LIPITOR [Concomitant]
  9. LORTAB [Concomitant]
  10. FEMARA [Concomitant]
  11. ZESTRIL [Concomitant]
  12. NEXIUM [Concomitant]
  13. VERAPAMIL SR (VERAPAMIL HYDROCHLORIDE) [Concomitant]
  14. GEMFIBROZIL [Concomitant]
  15. BETACAROTENE (BETACAROTENE) [Concomitant]
  16. VITAMIN B12                (CYCANOCOBALAMIN) [Concomitant]
  17. COLACE     (DOCUSATE SODIUM) [Concomitant]
  18. ALLOPURINAL                (ALLOPURINOL) [Concomitant]
  19. MEGACE               (MEGESTEROL ACETATE) [Concomitant]
  20. ZOFRAN [Concomitant]
  21. NEURONTIN [Concomitant]
  22. ASPIRIN [Concomitant]
  23. VITAMIN A [Concomitant]

REACTIONS (29)
  - ANAEMIA OF MALIGNANT DISEASE [None]
  - ARRHYTHMIA SUPRAVENTRICULAR [None]
  - BONE PAIN [None]
  - CARDIAC FAILURE CONGESTIVE [None]
  - DEHYDRATION [None]
  - FEBRILE NEUTROPENIA [None]
  - FLUID OVERLOAD [None]
  - GALLBLADDER POLYP [None]
  - GASTROOESOPHAGEAL REFLUX DISEASE [None]
  - HYPONATRAEMIA [None]
  - HYPOTENSION [None]
  - HYPOVOLAEMIA [None]
  - INJECTION SITE SCAR [None]
  - ISCHAEMIA [None]
  - LEUKOCYTOSIS [None]
  - MITRAL VALVE DISEASE [None]
  - MUCOSAL INFLAMMATION [None]
  - MUSCULOSKELETAL CHEST PAIN [None]
  - PAIN [None]
  - PANCYTOPENIA [None]
  - PLEURAL EFFUSION [None]
  - PLEURITIC PAIN [None]
  - PNEUMONIA [None]
  - PULMONARY CONGESTION [None]
  - PULMONARY VASCULAR DISORDER [None]
  - RENAL FAILURE ACUTE [None]
  - SUPRAVENTRICULAR TACHYCARDIA [None]
  - TRICUSPID VALVE INCOMPETENCE [None]
  - UNEVALUABLE EVENT [None]
